FAERS Safety Report 21885665 (Version 1)
Quarter: 2023Q1

REPORT INFORMATION
  Report Type: Spontaneous
  Country: US (occurrence: US)
  Receive Date: 20230119
  Receipt Date: 20230119
  Transmission Date: 20230418
  Serious: No
  Sender: FDA-Public Use
  Company Number: US-PFIZER INC-PV202300010306

PATIENT

DRUGS (3)
  1. GEMCITABINE HYDROCHLORIDE [Suspect]
     Active Substance: GEMCITABINE HYDROCHLORIDE
     Indication: Adenocarcinoma
     Dosage: UNK
  2. FLUOROURACIL\IRINOTECAN\LEUCOVORIN\OXALIPLATIN [Suspect]
     Active Substance: FLUOROURACIL\IRINOTECAN\LEUCOVORIN\OXALIPLATIN
     Indication: Adenocarcinoma
     Dosage: UNK
     Dates: start: 202107
  3. ABRAXANE [Suspect]
     Active Substance: PACLITAXEL
     Indication: Adenocarcinoma
     Dosage: UNK
     Dates: start: 202202

REACTIONS (5)
  - Tumour marker increased [Unknown]
  - Lymphadenopathy [Unknown]
  - K-ras gene mutation [Unknown]
  - Gene mutation [Unknown]
  - TP53 gene mutation [Unknown]

NARRATIVE: CASE EVENT DATE: 20221201
